FAERS Safety Report 11144336 (Version 2)
Quarter: 2015Q3

REPORT INFORMATION
  Report Type: Spontaneous
  Country: US (occurrence: US)
  Receive Date: 20150526
  Receipt Date: 20150820
  Transmission Date: 20151125
  Serious: No
  Sender: FDA-Public Use
  Company Number: US-PFIZER INC-2015162304

PATIENT
  Age: 53 Year
  Sex: Male
  Weight: 141 kg

DRUGS (5)
  1. ALAVERT ALLERGY [Suspect]
     Active Substance: LORATADINE
     Indication: COUGH
  2. ALAVERT ALLERGY [Suspect]
     Active Substance: LORATADINE
     Indication: RHINORRHOEA
  3. ALAVERT ALLERGY [Suspect]
     Active Substance: LORATADINE
     Indication: SEASONAL ALLERGY
     Dosage: 10 MG, 1X/DAY
     Route: 048
     Dates: start: 2015, end: 20150511
  4. ALAVERT ALLERGY [Suspect]
     Active Substance: LORATADINE
     Indication: LACRIMATION INCREASED
  5. ALAVERT ALLERGY [Suspect]
     Active Substance: LORATADINE
     Indication: THROAT IRRITATION

REACTIONS (2)
  - Saliva altered [Recovered/Resolved]
  - Salivary hypersecretion [Recovered/Resolved]

NARRATIVE: CASE EVENT DATE: 2015
